FAERS Safety Report 6918912-3 (Version None)
Quarter: 2010Q3

REPORT INFORMATION
  Report Type: 
  Country: None (occurrence: None)
  Receive Date: 20100811
  Receipt Date: 20100802
  Transmission Date: 20110219
  Serious: Yes (Hospitalization)
  Sender: FDA-Public Use
  Company Number: US-SANOFI-AVENTIS-2010SA046130

PATIENT
  Age: 57 Year
  Sex: Female

DRUGS (4)
  1. LOVENOX [Suspect]
     Route: 065
     Dates: start: 20100701, end: 20100716
  2. MASTISOL [Concomitant]
  3. ALL OTHER THERAPEUTIC PRODUCTS [Concomitant]
  4. ANALGESICS [Concomitant]

REACTIONS (9)
  - CONTUSION [None]
  - DYSPNOEA [None]
  - HYPOAESTHESIA [None]
  - INCISION SITE BLISTER [None]
  - INCISION SITE ERYTHEMA [None]
  - OEDEMA PERIPHERAL [None]
  - POSTOPERATIVE WOUND INFECTION [None]
  - PRURITUS [None]
  - URTICARIA [None]
